FAERS Safety Report 15765299 (Version 4)
Quarter: 2020Q3

REPORT INFORMATION
  Report Type: Spontaneous
  Country: AU (occurrence: AU)
  Receive Date: 20181227
  Receipt Date: 20190912
  Transmission Date: 20201105
  Serious: Yes (Hospitalization, Other)
  Sender: FDA-Public Use
  Company Number: AU-SA-2018SA389051

PATIENT
  Age: 20 Year
  Sex: Female

DRUGS (9)
  1. LEMTRADA [Suspect]
     Active Substance: ALEMTUZUMAB
     Dosage: SECOND COURSE
     Dates: start: 201711
  2. DIMETHYL FUMARATE [Suspect]
     Active Substance: DIMETHYL FUMARATE
     Indication: RELAPSING-REMITTING MULTIPLE SCLEROSIS
     Dosage: UNK
     Route: 065
     Dates: start: 2015
  3. THYROXINE [Concomitant]
     Active Substance: LEVOTHYROXINE
     Dosage: 100 MG, QD
  4. AUBAGIO [Suspect]
     Active Substance: TERIFLUNOMIDE
     Indication: RELAPSING-REMITTING MULTIPLE SCLEROSIS
     Route: 065
  5. COPAXONE [Concomitant]
     Active Substance: GLATIRAMER ACETATE
     Dosage: UNK
     Dates: start: 2016
  6. LEMTRADA [Suspect]
     Active Substance: ALEMTUZUMAB
     Indication: RELAPSING-REMITTING MULTIPLE SCLEROSIS
     Dosage: CYCLE 1 (5 DOSES)
     Dates: start: 201608
  7. LEMTRADA [Suspect]
     Active Substance: ALEMTUZUMAB
     Dosage: CYCLE 2 (3 DOSES)
     Dates: start: 201708
  8. CARBAMAZEPINE. [Suspect]
     Active Substance: CARBAMAZEPINE
  9. FINGOLIMOD. [Suspect]
     Active Substance: FINGOLIMOD
     Indication: RELAPSING-REMITTING MULTIPLE SCLEROSIS
     Dosage: UNK
     Route: 065
     Dates: start: 2014

REACTIONS (16)
  - Drug ineffective [Unknown]
  - Partial seizures [Recovered/Resolved]
  - Fatigue [Recovering/Resolving]
  - Multiple sclerosis relapse [Unknown]
  - Weight increased [Recovering/Resolving]
  - Menorrhagia [Unknown]
  - Status epilepticus [Recovered/Resolved]
  - Petechiae [Unknown]
  - Encephalitis autoimmune [Recovered/Resolved]
  - Generalised tonic-clonic seizure [Recovered/Resolved]
  - Paraesthesia [Recovered/Resolved]
  - Seizure [Recovered/Resolved]
  - Immune thrombocytopenia [Recovered/Resolved]
  - Facial spasm [Recovered/Resolved]
  - Autoimmune hypothyroidism [Recovering/Resolving]
  - Muscle contractions involuntary [Unknown]

NARRATIVE: CASE EVENT DATE: 201705
